FAERS Safety Report 8502225-2 (Version None)
Quarter: 2012Q3

REPORT INFORMATION
  Report Type: 
  Country: None (occurrence: None)
  Receive Date: 20120711
  Receipt Date: 20120704
  Transmission Date: 20120928
  Serious: Yes (Hospitalization, Other)
  Sender: FDA-Public Use
  Company Number: PHHY2012PL057344

PATIENT
  Age: 50 Year
  Sex: Female

DRUGS (4)
  1. ZEBETA [Concomitant]
  2. CEFTRIAXONE [Suspect]
  3. ACITRETIN [Suspect]
     Indication: SKIN DISORDER
  4. INDAPAMIDE [Concomitant]

REACTIONS (26)
  - OEDEMA [None]
  - DEPRESSION [None]
  - PAROSMIA [None]
  - C-REACTIVE PROTEIN INCREASED [None]
  - HYPERKERATOSIS [None]
  - BODY MASS INDEX INCREASED [None]
  - BUNDLE BRANCH BLOCK RIGHT [None]
  - HAEMATOCRIT DECREASED [None]
  - NEUTROPHIL COUNT INCREASED [None]
  - RED BLOOD CELL SEDIMENTATION RATE INCREASED [None]
  - BETA 2 MICROGLOBULIN INCREASED [None]
  - HEPATIC STEATOSIS [None]
  - CARDIAC DISORDER [None]
  - RENAL ADENOMA [None]
  - N-TERMINAL PROHORMONE BRAIN NATRIURETIC PEPTIDE INCREASED [None]
  - GAMMA-GLUTAMYLTRANSFERASE INCREASED [None]
  - ERYTHRODERMIC PSORIASIS [None]
  - LYMPHOCYTIC INFILTRATION [None]
  - SKIN EXFOLIATION [None]
  - HAEMOGLOBIN DECREASED [None]
  - XANTHELASMA [None]
  - MANIA [None]
  - FIBRIN D DIMER INCREASED [None]
  - GENERALISED ERYTHEMA [None]
  - DELUSION [None]
  - BLOOD THYROID STIMULATING HORMONE DECREASED [None]
